FAERS Safety Report 4661793-1 (Version None)
Quarter: 2005Q2

REPORT INFORMATION
  Report Type: 
  Country: None (occurrence: None)
  Receive Date: 20050513
  Receipt Date: 20050308
  Transmission Date: 20051028
  Serious: Yes (Other)
  Sender: FDA-Public Use
  Company Number: 2005UW03729

PATIENT
  Age: 54 Year
  Sex: Female
  Weight: 66.8 kg

DRUGS (6)
  1. CRESTOR [Suspect]
     Indication: HYPERCHOLESTEROLAEMIA
     Route: 048
     Dates: start: 20040101, end: 20041201
  2. TRICOR [Suspect]
     Route: 048
     Dates: end: 20041110
  3. ACCOLATE [Suspect]
     Indication: ASTHMA
     Route: 048
  4. BENECAR [Concomitant]
  5. MAXZIDE [Concomitant]
  6. PRAVACHOL [Concomitant]
     Dates: end: 20040801

REACTIONS (4)
  - ANTINUCLEAR ANTIBODY POSITIVE [None]
  - ASTHMA [None]
  - HEPATIC FIBROSIS [None]
  - HEPATITIS [None]
